FAERS Safety Report 20761951 (Version 1)
Quarter: 2022Q2

REPORT INFORMATION
  Report Type: Spontaneous
  Country: US (occurrence: None)
  Receive Date: 20220427
  Receipt Date: 20220427
  Transmission Date: 20220720
  Serious: Yes (Life-Threatening, Hospitalization, Disabling, Other)
  Sender: FDA-Public Use
  Company Number: None

PATIENT
  Age: 62 Year
  Sex: Female
  Weight: 48.53 kg

DRUGS (11)
  1. RECLAST [Suspect]
     Active Substance: ZOLEDRONIC ACID
     Indication: Bone disorder
     Dates: start: 20210329, end: 20210329
  2. THEOPHYLLINE ANHYDROUS [Concomitant]
     Active Substance: THEOPHYLLINE ANHYDROUS
  3. VITAMIN D3 [Concomitant]
     Active Substance: CHOLECALCIFEROL
  4. MONTELUKAST [Concomitant]
     Active Substance: MONTELUKAST SODIUM
  5. ASPIRIN [Concomitant]
     Active Substance: ASPIRIN
  6. HYDROXYZINE [Concomitant]
     Active Substance: HYDROXYZINE HYDROCHLORIDE
  7. PROAIR HFA [Concomitant]
     Active Substance: ALBUTEROL SULFATE
  8. OMEPRAZOLE [Concomitant]
     Active Substance: OMEPRAZOLE
  9. ALBUTEROL [Concomitant]
     Active Substance: ALBUTEROL
  10. ipratropium bro [Concomitant]
  11. ALVESCO [Concomitant]
     Active Substance: CICLESONIDE

REACTIONS (4)
  - Hypertension [None]
  - Eye pain [None]
  - Ocular hyperaemia [None]
  - Illness [None]

NARRATIVE: CASE EVENT DATE: 20220329
